FAERS Safety Report 14742090 (Version 8)
Quarter: 2019Q3

REPORT INFORMATION
  Report Type: Report from Study
  Country: DE (occurrence: DE)
  Receive Date: 20180410
  Receipt Date: 20190703
  Transmission Date: 20191004
  Serious: Yes (Hospitalization, Other)
  Sender: FDA-Public Use
  Company Number: DE-PFIZER INC-2018017273

PATIENT
  Age: 70 Year
  Sex: Female
  Weight: 89 kg

DRUGS (8)
  1. PERTUZUMAB. [Suspect]
     Active Substance: PERTUZUMAB
     Indication: HER-2 POSITIVE BREAST CANCER
     Dosage: 420 MG, CYCLIC DAY 1, EVERY 21 DAYS
     Dates: start: 20171006
  2. METOPROLOL. [Concomitant]
     Active Substance: METOPROLOL
     Indication: HYPERTENSION
     Dosage: 47.5 MG, UNK
  3. TRASTUZUMAB. [Suspect]
     Active Substance: TRASTUZUMAB
     Indication: HER-2 POSITIVE BREAST CANCER
     Dosage: 6 MG/KG, EVERY 3 WEEKS (EVERY 21 DAYS)
     Route: 042
     Dates: start: 20171006
  4. LOSARTAN. [Concomitant]
     Active Substance: LOSARTAN
     Indication: HYPERTENSION
     Dosage: UNK
     Route: 065
  5. PACLITAXEL. [Suspect]
     Active Substance: PACLITAXEL
     Indication: HER-2 POSITIVE BREAST CANCER
     Dosage: 80 MG/M2, CYCLIC DAY 1, 8 AND 15
     Dates: start: 20171006
  6. PACLITAXEL. [Suspect]
     Active Substance: PACLITAXEL
     Dosage: 240 MG/M2, DAY 1, 8 AND 15
     Route: 065
     Dates: start: 20171006
  7. ZOMETA [Suspect]
     Active Substance: ZOLEDRONIC ACID
     Indication: HER-2 POSITIVE BREAST CANCER
     Dosage: 4 MG, CYCLIC EVERY 28 DAYS
     Dates: start: 20171103
  8. HERCEPTIN [Suspect]
     Active Substance: TRASTUZUMAB
     Indication: HER-2 POSITIVE BREAST CANCER
     Dosage: 6 MG/KG, CYCLIC DAY 1
     Route: 042
     Dates: start: 20171006

REACTIONS (9)
  - Malaise [Recovered/Resolved]
  - Nasopharyngitis [Recovered/Resolved]
  - Diarrhoea [Recovered/Resolved]
  - Decreased appetite [Recovered/Resolved]
  - Skin toxicity [Recovered/Resolved]
  - General physical health deterioration [Unknown]
  - Dyspnoea [Recovered/Resolved]
  - Nail discolouration [Recovered/Resolved]
  - Toxic epidermal necrolysis [Recovered/Resolved]

NARRATIVE: CASE EVENT DATE: 20171016
